FAERS Safety Report 25726977 (Version 1)
Quarter: 2025Q3

REPORT INFORMATION
  Report Type: Spontaneous
  Country: US (occurrence: None)
  Receive Date: 20250825
  Receipt Date: 20250825
  Transmission Date: 20251020
  Serious: No
  Sender: FDA-CTU
  Company Number: None

PATIENT
  Age: 42 Year
  Sex: Male

DRUGS (3)
  1. APRETUDE [Suspect]
     Active Substance: CABOTEGRAVIR
     Indication: Prophylaxis against HIV infection
     Route: 030
     Dates: start: 20250707
  2. TADALAFIL [Concomitant]
     Active Substance: TADALAFIL
  3. VALACYCLOVIR [Concomitant]
     Active Substance: VALACYCLOVIR HYDROCHLORIDE

REACTIONS (4)
  - Injection site pain [None]
  - Gait disturbance [None]
  - Gait disturbance [None]
  - Therapy interrupted [None]

NARRATIVE: CASE EVENT DATE: 20250707
